FAERS Safety Report 9736628 (Version 2)
Quarter: 2014Q1

REPORT INFORMATION
  Report Type: Spontaneous
  Country: US (occurrence: US)
  Receive Date: 20131206
  Receipt Date: 20140110
  Transmission Date: 20141002
  Serious: Yes (Other)
  Sender: FDA-Public Use
  Company Number: US-PFIZER INC-2013348143

PATIENT
  Sex: 0

DRUGS (2)
  1. GABAPENTIN [Suspect]
     Indication: HYPOAESTHESIA
     Dosage: UNK
  2. GABAPENTIN [Suspect]
     Dosage: 1 DF, 1X/DAY

REACTIONS (6)
  - Off label use [Unknown]
  - Musculoskeletal disorder [Unknown]
  - Pain [Recovered/Resolved]
  - Hot flush [Unknown]
  - Insomnia [Unknown]
  - Drug ineffective for unapproved indication [Recovered/Resolved]
